FAERS Safety Report 24660404 (Version 1)
Quarter: 2024Q4

REPORT INFORMATION
  Report Type: Spontaneous
  Country: US (occurrence: US)
  Receive Date: 20241125
  Receipt Date: 20241125
  Transmission Date: 20250114
  Serious: Yes (Other)
  Sender: SANDOZ
  Company Number: US-SANDOZ-SDZ2024US023900

PATIENT
  Age: 71 Year
  Sex: Male

DRUGS (1)
  1. AMOXICILLIN [Suspect]
     Active Substance: AMOXICILLIN
     Indication: Product used for unknown indication
     Dosage: UNK, 875-125 MG
     Route: 048

REACTIONS (5)
  - Choking [Recovered/Resolved]
  - Middle insomnia [Unknown]
  - Choking sensation [Unknown]
  - Accidental exposure to product packaging [Unknown]
  - Packaging design issue [Unknown]
